FAERS Safety Report 7633730-9 (Version None)
Quarter: 2011Q3

REPORT INFORMATION
  Report Type: 
  Country: None (occurrence: None)
  Receive Date: 20110718
  Receipt Date: 20110707
  Transmission Date: 20111222
  Serious: Yes (Death, Hospitalization, Other)
  Sender: FDA-Public Use
  Company Number: ACO_25585_2011

PATIENT
  Age: 76 Year
  Sex: Female
  Weight: 100.2 kg

DRUGS (14)
  1. CALCIUM + VITAMIN D (CALCIUM CARBONATE, COLECALCIFEROL) [Concomitant]
  2. SIMETHICONE (SIMETICONE) [Concomitant]
  3. ASCORBIC ACID [Concomitant]
  4. CELEXA [Concomitant]
  5. ACETAMINOPHEN [Concomitant]
  6. LASIX [Concomitant]
  7. BACLOFEN [Concomitant]
  8. CRANBERRY (VACCINIUM MACROCARPON) [Concomitant]
  9. ZYRTEC [Concomitant]
  10. MUCINEX [Concomitant]
  11. AMPYRA [Suspect]
     Indication: DYSPHAGIA
     Dosage: 10 MG, BID, ORAL
     Route: 048
     Dates: start: 20110612
  12. AMPYRA [Suspect]
     Indication: DYSPHONIA
     Dosage: 10 MG, BID, ORAL
     Route: 048
     Dates: start: 20110612
  13. AMANTADINE HCL [Concomitant]
  14. ASPIRIN [Concomitant]

REACTIONS (2)
  - PULMONARY EMBOLISM [None]
  - CONVULSION [None]
